FAERS Safety Report 23714196 (Version 1)
Quarter: 2024Q2

REPORT INFORMATION
  Report Type: Spontaneous
  Country: US (occurrence: US)
  Receive Date: 20240405
  Receipt Date: 20240405
  Transmission Date: 20240716
  Serious: No
  Sender: FDA-Public Use
  Company Number: US-SANOFI-01997562

PATIENT
  Sex: Female

DRUGS (1)
  1. DUPIXENT [Suspect]
     Active Substance: DUPILUMAB
     Dosage: UNK

REACTIONS (6)
  - Eczema [Unknown]
  - Injection site mass [Unknown]
  - Tremor [Unknown]
  - Dizziness [Unknown]
  - Pain in extremity [Unknown]
  - Rash [Unknown]
